FAERS Safety Report 21024593 (Version 1)
Quarter: 2022Q2

REPORT INFORMATION
  Report Type: Spontaneous
  Country: ES (occurrence: ES)
  Receive Date: 20220629
  Receipt Date: 20220629
  Transmission Date: 20220721
  Serious: Yes (Other)
  Sender: FDA-Public Use
  Company Number: None

PATIENT
  Age: 72 Year
  Sex: Female
  Weight: 63 kg

DRUGS (10)
  1. REMINYL [Suspect]
     Active Substance: GALANTAMINE
     Indication: Memory impairment
     Route: 048
     Dates: start: 20220315, end: 20220603
  2. EZETIMIBE\ROSUVASTATIN [Concomitant]
     Active Substance: EZETIMIBE\ROSUVASTATIN
  3. ASPIRIN [Concomitant]
     Active Substance: ASPIRIN
  4. TRAZODONE [Concomitant]
     Active Substance: TRAZODONE HYDROCHLORIDE
  5. CALCIUM CARBONATE\CHOLECALCIFEROL [Concomitant]
     Active Substance: CALCIUM CARBONATE\CHOLECALCIFEROL
  6. HALOPERIDOL [Concomitant]
     Active Substance: HALOPERIDOL
  7. CYANOCOBALAMIN [Concomitant]
     Active Substance: CYANOCOBALAMIN
  8. PROLIA [Concomitant]
     Active Substance: DENOSUMAB
  9. CALCIFEDIOL [Concomitant]
     Active Substance: CALCIFEDIOL
  10. OMEPRAZOLE [Concomitant]
     Active Substance: OMEPRAZOLE

REACTIONS (4)
  - Negativism [Recovering/Resolving]
  - Aggression [Recovering/Resolving]
  - Gait disturbance [Recovering/Resolving]
  - Disorientation [Recovering/Resolving]

NARRATIVE: CASE EVENT DATE: 20220509
